FAERS Safety Report 5065513-0 (Version None)
Quarter: 2006Q3

REPORT INFORMATION
  Report Type: 
  Country: None (occurrence: None)
  Receive Date: 20060731
  Receipt Date: 20060724
  Transmission Date: 20061208
  Serious: Yes (Hospitalization)
  Sender: FDA-Public Use
  Company Number: GB-BRISTOL-MYERS SQUIBB COMPANY-13450655

PATIENT
  Age: 48 Year
  Sex: Female
  Weight: 64 kg

DRUGS (4)
  1. CYCLOPHOSPHAMIDE [Suspect]
     Indication: BREAST CANCER
     Dates: start: 20060315, end: 20060315
  2. PACLITAXEL [Suspect]
     Indication: BREAST CANCER
     Dates: start: 20060516, end: 20060516
  3. EPIRUBICIN [Suspect]
     Indication: BREAST CANCER
     Dates: start: 20060315, end: 20060315
  4. GEMCITABINE [Suspect]
     Indication: BREAST CANCER
     Dates: start: 20060516, end: 20060516

REACTIONS (1)
  - ARTHRALGIA [None]
